FAERS Safety Report 5622830-0 (Version None)
Quarter: 2008Q1

REPORT INFORMATION
  Report Type: 
  Country: None (occurrence: None)
  Receive Date: 20080208
  Receipt Date: 20080208
  Transmission Date: 20080703
  Serious: No
  Sender: FDA-Public Use
  Company Number: None

PATIENT
  Sex: Male
  Weight: 75.7507 kg

DRUGS (1)
  1. PLENDIL [Suspect]
     Indication: HYPERTENSION
     Dosage: 5 MG

REACTIONS (3)
  - DIZZINESS [None]
  - HEADACHE [None]
  - PHARMACEUTICAL PRODUCT COMPLAINT [None]
